FAERS Safety Report 12864554 (Version 4)
Quarter: 2016Q4

REPORT INFORMATION
  Report Type: Spontaneous
  Country: US (occurrence: US)
  Receive Date: 20161020
  Receipt Date: 20161116
  Transmission Date: 20170207
  Serious: No
  Sender: FDA-Public Use
  Company Number: ALCN2016US007090

PATIENT
  Age: 80 Year
  Sex: Female

DRUGS (3)
  1. DORZOLAMIDE [Suspect]
     Active Substance: DORZOLAMIDE
     Indication: GLAUCOMA
     Dosage: 1 GTT, BID
     Route: 047
     Dates: start: 20161012, end: 20161017
  2. DORZOLAMIDE [Suspect]
     Active Substance: DORZOLAMIDE
     Dosage: 1 GTT, BID
     Route: 047
  3. TRAVATAN Z [Concomitant]
     Active Substance: TRAVOPROST
     Indication: GLAUCOMA
     Dosage: 1 GTT, QD, QHS
     Route: 047
     Dates: start: 201602

REACTIONS (1)
  - Eye irritation [Recovered/Resolved]

NARRATIVE: CASE EVENT DATE: 20161012
